FAERS Safety Report 5286938-4 (Version None)
Quarter: 2007Q2

REPORT INFORMATION
  Report Type: 
  Country: None (occurrence: None)
  Receive Date: 20070404
  Receipt Date: 20070328
  Transmission Date: 20071010
  Serious: Yes (Other)
  Sender: FDA-Public Use
  Company Number: US-MERCK-0704USA00357

PATIENT
  Age: 7 Year
  Sex: Male

DRUGS (6)
  1. INDOCIN [Suspect]
     Indication: RHEUMATOID ARTHRITIS
     Route: 048
  2. INDOCIN [Suspect]
     Route: 048
  3. INDOCIN [Suspect]
     Route: 048
  4. PREDNISONE [Concomitant]
     Indication: JUVENILE ARTHRITIS
     Route: 065
  5. ASPIRIN [Concomitant]
     Route: 065
  6. MYOCHRYSINE [Suspect]
     Indication: JUVENILE ARTHRITIS
     Route: 030

REACTIONS (4)
  - BLOOD ALBUMIN DECREASED [None]
  - COAGULOPATHY [None]
  - HEPATOSPLENOMEGALY [None]
  - JUVENILE ARTHRITIS [None]
